FAERS Safety Report 25519346 (Version 1)
Quarter: 2025Q3

REPORT INFORMATION
  Report Type: Spontaneous
  Country: CN (occurrence: CN)
  Receive Date: 20250704
  Receipt Date: 20250704
  Transmission Date: 20251020
  Serious: Yes (Hospitalization)
  Sender: ROCHE
  Company Number: CN-ROCHE-10000323652

PATIENT
  Age: 53 Year
  Sex: Male

DRUGS (7)
  1. GAZYVA [Suspect]
     Active Substance: OBINUTUZUMAB
     Indication: Nephrotic syndrome
     Route: 042
     Dates: start: 20250618, end: 20250618
  2. OMEPRAZOLE [Concomitant]
     Active Substance: OMEPRAZOLE
  3. METHYLPREDNISOLONE [Concomitant]
     Active Substance: METHYLPREDNISOLONE
  4. LORATADINE [Concomitant]
     Active Substance: LORATADINE
  5. ACETAMINOPHEN [Concomitant]
     Active Substance: ACETAMINOPHEN
  6. PSEUDOEPHEDRINE HYDROCHLORIDE [Concomitant]
     Active Substance: PSEUDOEPHEDRINE HYDROCHLORIDE
  7. Dextromethorphan Hydrobromide Tablets [Concomitant]

REACTIONS (8)
  - Tremor [Recovered/Resolved]
  - Chills [Recovering/Resolving]
  - Hypertension [Recovering/Resolving]
  - Back pain [Recovering/Resolving]
  - Gastrointestinal disorder [Unknown]
  - Pallor [Unknown]
  - Cold sweat [Unknown]
  - Off label use [Unknown]

NARRATIVE: CASE EVENT DATE: 20250618
